FAERS Safety Report 16669046 (Version 1)
Quarter: 2019Q3

REPORT INFORMATION
  Report Type: Spontaneous
  Country: US (occurrence: US)
  Receive Date: 20190805
  Receipt Date: 20190805
  Transmission Date: 20191004
  Serious: No
  Sender: FDA-Public Use
  Company Number: None

PATIENT
  Age: 53 Year
  Sex: Female
  Weight: 106.65 kg

DRUGS (2)
  1. ESTRADIOL. [Suspect]
     Active Substance: ESTRADIOL
     Indication: BLOOD OESTROGEN DECREASED
     Dosage: ?          QUANTITY:24 PATCH(ES);OTHER FREQUENCY:2X WEEK;?
     Route: 061
  2. CLONAZEPAM. [Concomitant]
     Active Substance: CLONAZEPAM

REACTIONS (3)
  - Product adhesion issue [None]
  - Menopausal symptoms [None]
  - Application site erythema [None]

NARRATIVE: CASE EVENT DATE: 20190105
